FAERS Safety Report 5496716-9 (Version None)
Quarter: 2007Q4

REPORT INFORMATION
  Report Type: 
  Country: None (occurrence: None)
  Receive Date: 20071023
  Receipt Date: 20071012
  Transmission Date: 20080405
  Serious: Yes (Other)
  Sender: FDA-Public Use
  Company Number: GXKR2007DK08850

PATIENT
  Age: 18 Year
  Sex: Female
  Weight: 49.5 kg

DRUGS (3)
  1. DICLOXACILLIN [Suspect]
     Indication: LOCALISED INFECTION
     Dosage: 2000 MG/DAY, ORAL
     Route: 048
     Dates: start: 20070925, end: 20071004
  2. GALENIC/ETHINYLESTRADIOL/GESTODENE/(ETHINY LESTRADIOL, GESTODENE) 30/7 [Suspect]
     Indication: CONTRACEPTION
     Dosage: ORAL
     Route: 048
     Dates: start: 20070905
  3. PRIMICILIN (PHENOXYMETHYLPENICILLIN POTASSIUM) [Concomitant]

REACTIONS (3)
  - DRUG INEFFECTIVE [None]
  - DRUG INTERACTION [None]
  - MENSTRUATION IRREGULAR [None]
